FAERS Safety Report 17559306 (Version 1)
Quarter: 2020Q1

REPORT INFORMATION
  Report Type: Spontaneous
  Country: IT (occurrence: IT)
  Receive Date: 20200319
  Receipt Date: 20200319
  Transmission Date: 20200409
  Serious: Yes (Death)
  Sender: FDA-Public Use
  Company Number: IT-ASTRAZENECA-2020SE38890

PATIENT
  Age: 57 Year
  Sex: Female

DRUGS (1)
  1. LYNPARZA [Suspect]
     Active Substance: OLAPARIB
     Indication: OVARIAN NEOPLASM
     Route: 048
     Dates: start: 20191028, end: 20200207

REACTIONS (7)
  - Pleural effusion [Fatal]
  - Enteritis [Fatal]
  - Cough [Fatal]
  - Pericardial effusion [Fatal]
  - Staphylococcal sepsis [Fatal]
  - Embolism [Fatal]
  - Dyspnoea [Fatal]

NARRATIVE: CASE EVENT DATE: 20200207
